FAERS Safety Report 9467022 (Version 3)
Quarter: 2013Q4

REPORT INFORMATION
  Report Type: Spontaneous
  Country: US (occurrence: US)
  Receive Date: 20130820
  Receipt Date: 20131111
  Transmission Date: 20140711
  Serious: Yes (Hospitalization)
  Sender: FDA-Public Use
  Company Number: US-GLAXOSMITHKLINE-A1038094A

PATIENT
  Age: 91 Year
  Sex: Male

DRUGS (2)
  1. VERAMYST [Suspect]
     Indication: PRODUCT USED FOR UNKNOWN INDICATION
     Dosage: 27.5MG UNKNOWN
     Route: 065
     Dates: start: 201212
  2. AVODART [Suspect]
     Indication: PRODUCT USED FOR UNKNOWN INDICATION
     Dosage: .5MG UNKNOWN
     Route: 065
     Dates: start: 20111112

REACTIONS (2)
  - Colitis [Unknown]
  - Diarrhoea [Unknown]
